FAERS Safety Report 4475064-X (Version None)
Quarter: 2004Q4

REPORT INFORMATION
  Report Type: 
  Country: None (occurrence: None)
  Receive Date: 20041015
  Receipt Date: 20041004
  Transmission Date: 20050328
  Serious: Yes (Hospitalization)
  Sender: FDA-Public Use
  Company Number: SK-JNJFOC-20040806009

PATIENT
  Age: 58 Year
  Sex: Female

DRUGS (7)
  1. REMICADE [Suspect]
     Dosage: 2ND DOSE OF MAINTATENANCE THERAPY.
     Route: 042
  2. REMICADE [Suspect]
     Dosage: 1ST DOSE OF MAINTENANCE THERAPY.
     Route: 042
  3. REMICADE [Suspect]
     Route: 042
  4. REMICADE [Suspect]
     Indication: CROHN'S DISEASE
     Route: 042
  5. METHYLPREDNISOLONE [Concomitant]
     Route: 049
  6. AZATHIOPRINE [Concomitant]
     Route: 049
  7. MESALAMINE [Concomitant]
     Route: 049

REACTIONS (1)
  - MENINGITIS TUBERCULOUS [None]
